FAERS Safety Report 20007970 (Version 2)
Quarter: 2021Q4

REPORT INFORMATION
  Report Type: Spontaneous
  Country: US (occurrence: US)
  Receive Date: 20211028
  Receipt Date: 20211108
  Transmission Date: 20220303
  Serious: No
  Sender: FDA-Public Use
  Company Number: US-PFIZER INC-2021024633

PATIENT
  Age: 76 Year
  Sex: Female

DRUGS (3)
  1. IBRANCE [Suspect]
     Active Substance: PALBOCICLIB
     Indication: Breast cancer female
     Dosage: 100 MG CYCLIC. DAILY X21 DAYS THEN 7 DAYS OFF
     Dates: start: 20200820
  2. IBRANCE [Suspect]
     Active Substance: PALBOCICLIB
     Dosage: 100 MG, CYCLIC (100MG PO QD FOR 21DAYS ON/7OFF)
     Route: 048
     Dates: start: 20200826
  3. IBRANCE [Suspect]
     Active Substance: PALBOCICLIB
     Dosage: 100 MG
     Dates: start: 20200827

REACTIONS (2)
  - Product dose omission issue [Unknown]
  - Inflammation [Not Recovered/Not Resolved]
